APPROVED DRUG PRODUCT: SPECTRACEF
Active Ingredient: CEFDITOREN PIVOXIL
Strength: 400MG
Dosage Form/Route: TABLET;ORAL
Application: N021222 | Product #002
Applicant: VANSEN PHARMA
Approved: Jul 21, 2008 | RLD: No | RS: No | Type: DISCN